FAERS Safety Report 9008522 (Version 1)
Quarter: 2013Q1

REPORT INFORMATION
  Report Type: Spontaneous
  Country: US (occurrence: US)
  Receive Date: 20130111
  Receipt Date: 20130111
  Transmission Date: 20140127
  Serious: Yes (Other)
  Sender: FDA-Public Use
  Company Number: US-009507513-0901USA02236

PATIENT
  Age: 4 Year
  Sex: Male
  Weight: 14.97 kg

DRUGS (1)
  1. SINGULAIR [Suspect]
     Indication: SEASONAL ALLERGY
     Dosage: 4 MG, QD
     Route: 048
     Dates: start: 20080722, end: 20080722

REACTIONS (11)
  - Abnormal behaviour [Recovered/Resolved]
  - Agitation [Recovered/Resolved]
  - Anxiety [Recovered/Resolved]
  - Crying [Recovered/Resolved]
  - Discomfort [Recovered/Resolved]
  - Fear [Recovered/Resolved]
  - Movement disorder [Recovered/Resolved]
  - Restlessness [Recovered/Resolved]
  - Sleep disorder [Recovered/Resolved]
  - Somnambulism [Recovered/Resolved]
  - Speech disorder [Recovered/Resolved]
